FAERS Safety Report 8420313-6 (Version None)
Quarter: 2012Q2

REPORT INFORMATION
  Report Type: 
  Country: None (occurrence: None)
  Receive Date: 20120607
  Receipt Date: 20120604
  Transmission Date: 20120825
  Serious: Yes (Hospitalization)
  Sender: FDA-Public Use
  Company Number: IT-BAXTER-2012BAX005183

PATIENT
  Sex: Male

DRUGS (7)
  1. CYTARABINE [Suspect]
     Route: 042
     Dates: start: 20091204, end: 20091207
  2. GEMCITABINE [Suspect]
     Route: 042
     Dates: start: 20090303, end: 20090402
  3. IFOSFAMIDE [Suspect]
     Route: 042
     Dates: start: 20090303, end: 20090402
  4. DOXORUBICIN HYDROCHLORIDE [Suspect]
     Route: 042
     Dates: start: 20081007, end: 20090812
  5. ETOPOSIDE [Suspect]
     Route: 042
     Dates: start: 20090525, end: 20091207
  6. CYCLOPHOSPHAMIDE [Suspect]
     Indication: HODGKIN'S DISEASE
     Route: 042
     Dates: start: 20090430, end: 20090812
  7. BLEOMYCIN SULFATE [Suspect]
     Route: 042
     Dates: start: 20081007, end: 20090819

REACTIONS (1)
  - NON-HODGKIN'S LYMPHOMA [None]
